FAERS Safety Report 14436569 (Version 1)
Quarter: 2018Q1

REPORT INFORMATION
  Report Type: Spontaneous
  Country: US (occurrence: US)
  Receive Date: 20180124
  Receipt Date: 20180124
  Transmission Date: 20180509
  Serious: Yes (Death)
  Sender: FDA-Public Use
  Company Number: None

PATIENT
  Age: 78 Year
  Sex: Female

DRUGS (23)
  1. BENZTROPINE. [Concomitant]
     Active Substance: BENZTROPINE
  2. ONDANSETRON [Concomitant]
     Active Substance: ONDANSETRON
  3. QUETIAPINE. [Concomitant]
     Active Substance: QUETIAPINE
  4. RIVASTIGMINE. [Concomitant]
     Active Substance: RIVASTIGMINE
  5. SMZ/TMP [Concomitant]
     Active Substance: SULFAMETHOXAZOLE\TRIMETHOPRIM
  6. VITAMIN D [Concomitant]
     Active Substance: CHOLECALCIFEROL
  7. NUPLAZID [Suspect]
     Active Substance: PIMAVANSERIN TARTRATE
     Indication: PARKINSON^S DISEASE PSYCHOSIS
     Route: 048
     Dates: start: 20161031, end: 201708
  8. CITALOPRAM [Concomitant]
     Active Substance: CITALOPRAM HYDROBROMIDE
  9. OMEPRAZOLE. [Concomitant]
     Active Substance: OMEPRAZOLE
  10. PRAZOSIN. [Concomitant]
     Active Substance: PRAZOSIN
  11. AMANTADINE. [Concomitant]
     Active Substance: AMANTADINE HYDROCHLORIDE
  12. NAMENDA [Concomitant]
     Active Substance: MEMANTINE HYDROCHLORIDE
  13. ESCITALOPRAM [Concomitant]
     Active Substance: ESCITALOPRAM OXALATE
  14. CARB/LEVO [Concomitant]
     Active Substance: CARBIDOPA\LEVODOPA
  15. CYANOCOBALAM [Concomitant]
  16. FAMOTIDINE. [Concomitant]
     Active Substance: FAMOTIDINE
  17. MINIPRESS [Concomitant]
     Active Substance: PRAZOSIN HYDROCHLORIDE
  18. MIRTAZAPINE. [Concomitant]
     Active Substance: MIRTAZAPINE
  19. METOPROLOL. [Concomitant]
     Active Substance: METOPROLOL
  20. MUPIROCIN. [Concomitant]
     Active Substance: MUPIROCIN
  21. NITROFURANTN [Concomitant]
     Active Substance: NITROFURANTOIN
  22. TRILEPTAL [Concomitant]
     Active Substance: OXCARBAZEPINE
  23. ZYPREXA [Concomitant]
     Active Substance: OLANZAPINE

REACTIONS (1)
  - Death [None]

NARRATIVE: CASE EVENT DATE: 20180112
